FAERS Safety Report 6575923-8 (Version None)
Quarter: 2010Q1

REPORT INFORMATION
  Report Type: 
  Country: None (occurrence: None)
  Receive Date: 20100209
  Receipt Date: 20100202
  Transmission Date: 20100710
  Serious: Yes (Hospitalization)
  Sender: FDA-Public Use
  Company Number: US-WYE-H12620209

PATIENT
  Age: 47 Year
  Sex: Female
  Weight: 167 kg

DRUGS (6)
  1. TORISEL [Suspect]
     Indication: ENDOMETRIAL CANCER
     Route: 042
     Dates: start: 20090326, end: 20091105
  2. ATIVAN [Concomitant]
  3. METFORMIN HCL [Concomitant]
  4. DILAUDID [Concomitant]
  5. LISINOPRIL [Concomitant]
  6. CELEXA [Concomitant]

REACTIONS (4)
  - CORYNEBACTERIUM INFECTION [None]
  - SKIN LESION [None]
  - ULCER [None]
  - WOUND INFECTION STAPHYLOCOCCAL [None]
